FAERS Safety Report 24709005 (Version 3)
Quarter: 2025Q3

REPORT INFORMATION
  Report Type: Spontaneous
  Country: EU (occurrence: EU)
  Receive Date: 20241208
  Receipt Date: 20250802
  Transmission Date: 20251020
  Serious: Yes (Life-Threatening, Hospitalization, Other)
  Sender: ALEXION PHARMACEUTICALS
  Company Number: EU-AstraZeneca-CH-00749993A

PATIENT
  Age: 68 Year
  Sex: Male
  Weight: 75 kg

DRUGS (22)
  1. DAPAGLIFLOZIN [Suspect]
     Active Substance: DAPAGLIFLOZIN
     Dosage: 10 MILLIGRAM, QD
     Dates: start: 20240501
  2. FEBUXOSTAT [Concomitant]
     Active Substance: FEBUXOSTAT
     Indication: Hyperuricaemia
     Dosage: 60 MILLIGRAM, QD
     Dates: start: 20240505
  3. FEBUXOSTAT [Concomitant]
     Active Substance: FEBUXOSTAT
     Dosage: 120 MILLIGRAM, QD
     Route: 065
  4. TELMISARTAN [Concomitant]
     Active Substance: TELMISARTAN
     Indication: Atrial fibrillation
     Dates: start: 20240401
  5. ELIQUIS [Concomitant]
     Active Substance: APIXABAN
     Indication: Atrial fibrillation
     Dates: start: 20220510
  6. BISOPROLOL [Concomitant]
     Active Substance: BISOPROLOL
     Indication: Atrial fibrillation
     Dates: start: 20220510
  7. LERCANIDIPINE [Concomitant]
     Active Substance: LERCANIDIPINE
     Indication: Atrial fibrillation
     Dates: start: 20240505
  8. PRAZOSIN [Concomitant]
     Active Substance: PRAZOSIN
     Indication: Atrial fibrillation
     Dosage: 2 MILLIGRAM, Q12H
     Dates: start: 20240505
  9. MOLSIDOMINE [Concomitant]
     Active Substance: MOLSIDOMINE
     Dates: start: 20220510
  10. FUROSEMIDE [Concomitant]
     Active Substance: FUROSEMIDE
     Indication: Atrial fibrillation
     Dates: start: 20241111
  11. MOXONIDINE [Concomitant]
     Active Substance: MOXONIDINE
     Dates: start: 20231010
  12. PANTOPRAZOLE [Concomitant]
     Active Substance: PANTOPRAZOLE
     Route: 065
  13. COLCHICINE [Concomitant]
     Active Substance: COLCHICINE
     Dosage: 0.5 MILLIGRAM, BID
     Route: 065
  14. FUROSEMIDE [Concomitant]
     Active Substance: FUROSEMIDE
     Route: 065
  15. MOLSIDOMINE [Concomitant]
     Active Substance: MOLSIDOMINE
     Dosage: 2 MILLIGRAM, BID
     Route: 065
  16. APIXABAN [Concomitant]
     Active Substance: APIXABAN
     Dosage: 2.5 MILLIGRAM, BID
     Route: 065
  17. ROSUVASTATIN [Concomitant]
     Active Substance: ROSUVASTATIN
     Dosage: 10 MILLIGRAM, QD
     Route: 065
  18. TAMSULOSIN [Concomitant]
     Active Substance: TAMSULOSIN
     Dosage: 0.4 MILLIGRAM, QD
     Route: 065
  19. CALCIUM DOBESILATE [Concomitant]
     Active Substance: CALCIUM DOBESILATE
     Dosage: 500 MILLIGRAM, BID
     Route: 065
  20. Osteo d [Concomitant]
     Dosage: 0.25 MICROGRAM, QD
     Route: 065
  21. CALCIUM CARBONATE [Concomitant]
     Active Substance: CALCIUM CARBONATE
     Dosage: 600 MILLIGRAM, QD
     Route: 065
  22. EPLERENONE [Concomitant]
     Active Substance: EPLERENONE
     Route: 065

REACTIONS (3)
  - Acute myocardial infarction [Recovering/Resolving]
  - Renal impairment [Recovering/Resolving]
  - Blood pressure inadequately controlled [Recovering/Resolving]

NARRATIVE: CASE EVENT DATE: 20241015
